FAERS Safety Report 7287735-0 (Version None)
Quarter: 2011Q1

REPORT INFORMATION
  Report Type: 
  Country: None (occurrence: None)
  Receive Date: 20110211
  Receipt Date: 20110203
  Transmission Date: 20110831
  Serious: Yes (Hospitalization, Other)
  Sender: FDA-Public Use
  Company Number: US-JNJFOC-20110201699

PATIENT
  Sex: Female
  Weight: 95.26 kg

DRUGS (5)
  1. DURAGESIC-50 [Suspect]
     Indication: BACK PAIN
     Route: 062
  2. METHOCARBAMOL [Concomitant]
     Indication: MUSCLE RELAXANT THERAPY
     Route: 048
  3. LORTAB [Concomitant]
     Indication: BREAKTHROUGH PAIN
     Dosage: 10/500 MG TABLET
     Route: 048
  4. DURAGESIC-50 [Suspect]
     Route: 062
  5. IBUPROFEN [Concomitant]
     Indication: BREAKTHROUGH PAIN
     Route: 048

REACTIONS (6)
  - DRUG DOSE OMISSION [None]
  - BACK PAIN [None]
  - WITHDRAWAL SYNDROME [None]
  - GASTRIC DISORDER [None]
  - SENSORY DISTURBANCE [None]
  - DEPRESSION [None]
